FAERS Safety Report 9820317 (Version 1)
Quarter: 2013Q4

REPORT INFORMATION
  Report Type: Spontaneous
  Country: US (occurrence: None)
  Receive Date: 20131223
  Receipt Date: 20131223
  Transmission Date: 20140711
  Serious: No
  Sender: FDA-Public Use
  Company Number: 220503

PATIENT
  Age: 56 Year
  Sex: Male

DRUGS (2)
  1. PICATO [Suspect]
     Indication: ACTINIC KERATOSIS
     Route: 061
     Dates: start: 20130208, end: 20130210
  2. ASA (ACETYLSALICYLIC ACID) [Concomitant]

REACTIONS (1)
  - Application site exfoliation [None]
